FAERS Safety Report 8774000 (Version 1)
Quarter: 2012Q4

REPORT INFORMATION
  Report Type: 
  Country: US (occurrence: US)
  Receive Date: 20120908
  Receipt Date: 20120908
  Transmission Date: 20130627
  Serious: Yes (Death, Hospitalization, Other)
  Sender: FDA-Public Use
  Company Number: US-ABBOTT-12P-163-0976200-00

PATIENT
  Age: 80 None
  Sex: Female
  Weight: 50.85 kg

DRUGS (9)
  1. HUMIRA [Suspect]
     Indication: RHEUMATOID ARTHRITIS
     Dosage: PFS
     Route: 058
     Dates: start: 2002, end: 2009
  2. HUMIRA [Suspect]
     Dosage: Pen
     Route: 058
     Dates: start: 2009, end: 201208
  3. ZITHROMAX [Suspect]
     Indication: INFLUENZA
     Dates: start: 201202, end: 201202
  4. METHOTREXATE [Concomitant]
     Indication: RHEUMATOID ARTHRITIS
     Dates: start: 1997, end: 201208
  5. FORTEO [Concomitant]
     Indication: OSTEOPOROSIS
  6. ALENDRONATE SODIUM [Concomitant]
     Indication: OSTEOPOROSIS
  7. UNKNOWN BLOOD PRESSURE MEDICATION [Concomitant]
     Indication: HYPERTENSION
  8. LEVOTHYROXINE [Concomitant]
     Indication: HYPOTHYROIDISM
  9. WARFARIN [Concomitant]
     Indication: THROMBOSIS

REACTIONS (20)
  - Pulmonary fibrosis [Fatal]
  - Influenza [Recovered/Resolved]
  - Vomiting [Recovered/Resolved]
  - Delusion [Recovered/Resolved]
  - Dehydration [Recovered/Resolved]
  - Decreased activity [Not Recovered/Not Resolved]
  - Fatigue [Not Recovered/Not Resolved]
  - None [Not Recovered/Not Resolved]
  - Dyspnoea [Not Recovered/Not Resolved]
  - Dyspnoea [Not Recovered/Not Resolved]
  - Lung disorder [Not Recovered/Not Resolved]
  - Pneumonia [Recovered/Resolved]
  - Blood sodium decreased [Unknown]
  - None [Not Recovered/Not Resolved]
  - Fatigue [Not Recovered/Not Resolved]
  - Vomiting [Recovered/Resolved]
  - Aspiration [Not Recovered/Not Resolved]
  - General physical health deterioration [Fatal]
  - Gastric disorder [Not Recovered/Not Resolved]
  - Renal failure [Not Recovered/Not Resolved]
